FAERS Safety Report 11148278 (Version 1)
Quarter: 2015Q2

REPORT INFORMATION
  Report Type: Spontaneous
  Country: JP (occurrence: JP)
  Receive Date: 20150529
  Receipt Date: 20150529
  Transmission Date: 20150821
  Serious: Yes (Hospitalization)
  Sender: FDA-Public Use
  Company Number: JP-PFIZER INC-2015162013

PATIENT
  Age: 76 Year
  Sex: Female

DRUGS (7)
  1. NORVASC [Suspect]
     Active Substance: AMLODIPINE BESYLATE
     Indication: HYPERTENSION
     Dosage: 10 MG, ONCE DAILY
     Route: 048
  2. EPADEL [Concomitant]
     Active Substance: ICOSAPENT
     Dosage: 300 MG, ONCE DAILY
     Route: 048
  3. OMEPRAZOLE. [Concomitant]
     Active Substance: OMEPRAZOLE
     Dosage: 20 MG, ONCE DAILY
  4. BEZATOL [Concomitant]
     Active Substance: BEZAFIBRATE
     Dosage: 200 MG, 2X/DAY
  5. MAINTATE [Concomitant]
     Active Substance: BISOPROLOL FUMARATE
     Dosage: 2.5 MG, ONCE DAILY
     Route: 048
  6. RIZE [Concomitant]
     Active Substance: CLOTIAZEPAM
     Dosage: 5 MG, 2X/DAY
  7. KETAS [Concomitant]
     Active Substance: IBUDILAST
     Dosage: 10 MG, 3X/DAY
     Route: 048

REACTIONS (2)
  - Pneumonia [Recovering/Resolving]
  - Leukoderma [Not Recovered/Not Resolved]

NARRATIVE: CASE EVENT DATE: 20150508
